FAERS Safety Report 20018593 (Version 2)
Quarter: 2021Q4

REPORT INFORMATION
  Report Type: Spontaneous
  Country: FR (occurrence: FR)
  Receive Date: 20211101
  Receipt Date: 20211105
  Transmission Date: 20220303
  Serious: Yes (Hospitalization, Other)
  Sender: FDA-Public Use
  Company Number: FR-ORGANON-O2110FRA002543

PATIENT
  Sex: Female

DRUGS (1)
  1. BETAMETHASONE DIPROPIONATE\BETAMETHASONE SODIUM PHOSPHATE [Suspect]
     Active Substance: BETAMETHASONE DIPROPIONATE\BETAMETHASONE SODIUM PHOSPHATE
     Indication: Osteoarthritis
     Dosage: FIRST INFILTRATION IN THE KNEE
     Dates: start: 20210831

REACTIONS (6)
  - Pulmonary embolism [Unknown]
  - Diaphragmatic spasm [Not Recovered/Not Resolved]
  - Vertigo [Recovered/Resolved]
  - Malaise [Unknown]
  - Chest discomfort [Recovered/Resolved]
  - Anxiety [Unknown]

NARRATIVE: CASE EVENT DATE: 20210101
